FAERS Safety Report 7108694-7 (Version None)
Quarter: 2010Q4

REPORT INFORMATION
  Report Type: 
  Country: None (occurrence: None)
  Receive Date: 20101117
  Receipt Date: 20070626
  Transmission Date: 20110411
  Serious: Yes (Other)
  Sender: FDA-Public Use
  Company Number: NL-ROCHE-741481

PATIENT

DRUGS (1)
  1. XELODA [Suspect]
     Route: 048

REACTIONS (1)
  - CARDIAC DISORDER [None]
